FAERS Safety Report 9290383 (Version 5)
Quarter: 2015Q3

REPORT INFORMATION
  Report Type: Spontaneous
  Country: US (occurrence: US)
  Receive Date: 20130515
  Receipt Date: 20150708
  Transmission Date: 20151125
  Serious: Yes (Other)
  Sender: FDA-Public Use
  Company Number: US-PFIZER INC-2013149353

PATIENT
  Age: 63 Year
  Sex: Female
  Weight: 74 kg

DRUGS (2)
  1. DILANTIN [Suspect]
     Active Substance: PHENYTOIN
     Indication: SEIZURE
     Dosage: 130MG (100MG CAPSULE+30MG CAPSULE), 2X/DAY
     Route: 048
     Dates: start: 1953
  2. TEGRETOL [Concomitant]
     Active Substance: CARBAMAZEPINE
     Indication: SEIZURE
     Dosage: 200 MG, 2X/DAY
     Route: 048

REACTIONS (13)
  - Urinary tract infection [Not Recovered/Not Resolved]
  - Hepatic pain [Not Recovered/Not Resolved]
  - Kidney infection [Not Recovered/Not Resolved]
  - Intentional product misuse [Not Recovered/Not Resolved]
  - Renal pain [Unknown]
  - Reaction to drug excipients [Unknown]
  - Renal disorder [Unknown]
  - Dysuria [Unknown]
  - Gastrointestinal disorder [Unknown]
  - Urinary tract disorder [Unknown]
  - Liver disorder [Unknown]
  - General physical health deterioration [Unknown]
  - Oropharyngeal pain [Not Recovered/Not Resolved]

NARRATIVE: CASE EVENT DATE: 2015
